FAERS Safety Report 22796509 (Version 4)
Quarter: 2023Q4

REPORT INFORMATION
  Report Type: Report from Study
  Country: US (occurrence: US)
  Receive Date: 20230808
  Receipt Date: 20231201
  Transmission Date: 20240110
  Serious: No
  Sender: FDA-Public Use
  Company Number: US-ACADIA PHARMACEUTICALS INC.-ACA-2023-TRF-002971

PATIENT
  Sex: Female

DRUGS (12)
  1. DAYBUE [Suspect]
     Active Substance: TROFINETIDE
     Indication: Rett syndrome
     Dosage: 15 MILLILITER, BID VIA G-TUBE
  2. DAYBUE [Suspect]
     Active Substance: TROFINETIDE
     Dosage: 60 MILLILITER, BID VIA G-TUBE
  3. DAYBUE [Suspect]
     Active Substance: TROFINETIDE
     Dosage: 40 MILLILITER, BID VIA G-TUBE
  4. VIMPAT [Concomitant]
     Active Substance: LACOSAMIDE
  5. EPIDIOLEX [Concomitant]
     Active Substance: CANNABIDIOL
  6. ONFI [Concomitant]
     Active Substance: CLOBAZAM
  7. HYDROCORTISONE [Concomitant]
     Active Substance: HYDROCORTISONE
  8. XARELTO [Concomitant]
     Active Substance: RIVAROXABAN
  9. TOPAMAX [Concomitant]
     Active Substance: TOPIRAMATE
  10. KEPPRA [Concomitant]
     Active Substance: LEVETIRACETAM
  11. VALTOCO [Concomitant]
     Active Substance: DIAZEPAM
  12. ALBUTEROL [Concomitant]
     Active Substance: ALBUTEROL
     Dosage: NEBULIZER

REACTIONS (4)
  - Underdose [Not Recovered/Not Resolved]
  - Diarrhoea [Recovering/Resolving]
  - Diarrhoea [Not Recovered/Not Resolved]
  - Diarrhoea [Not Recovered/Not Resolved]
